FAERS Safety Report 13833366 (Version 1)
Quarter: 2017Q3

REPORT INFORMATION
  Report Type: Spontaneous
  Country: US (occurrence: US)
  Receive Date: 20170803
  Receipt Date: 20170803
  Transmission Date: 20171127
  Serious: Yes (Hospitalization)
  Sender: FDA-Public Use
  Company Number: None

PATIENT
  Age: 82 Year
  Sex: Male

DRUGS (2)
  1. LISINOPRIL. [Suspect]
     Active Substance: LISINOPRIL
     Indication: CARDIAC FAILURE CONGESTIVE
     Route: 048
     Dates: start: 20131218, end: 20170726
  2. SPIRONOLACTONE. [Suspect]
     Active Substance: SPIRONOLACTONE
     Indication: CARDIAC FAILURE CONGESTIVE
     Route: 048
     Dates: start: 20140122, end: 20170726

REACTIONS (7)
  - Acute kidney injury [None]
  - Weight increased [None]
  - Prerenal failure [None]
  - Electrocardiogram T wave peaked [None]
  - Fluid overload [None]
  - Hyperkalaemia [None]
  - Hypovolaemia [None]

NARRATIVE: CASE EVENT DATE: 20170726
